FAERS Safety Report 18749337 (Version 1)
Quarter: 2021Q1

REPORT INFORMATION
  Report Type: Spontaneous
  Country: US (occurrence: US)
  Receive Date: 20210116
  Receipt Date: 20210116
  Transmission Date: 20210419
  Serious: Yes (Other)
  Sender: FDA-Public Use
  Company Number: US-TAKEDA-2021TUS002147

PATIENT
  Sex: Male
  Weight: 72.56 kg

DRUGS (36)
  1. MOBIC [Concomitant]
     Active Substance: MELOXICAM
  2. ALLOPURINOL. [Concomitant]
     Active Substance: ALLOPURINOL
  3. GAMMAGARD LIQUID [Suspect]
     Active Substance: HUMAN IMMUNOGLOBULIN G
     Indication: IMMUNODEFICIENCY COMMON VARIABLE
     Dosage: 30 GRAM, Q4WEEKS
     Route: 042
     Dates: start: 20180306
  4. EPINEPHRINE. [Concomitant]
     Active Substance: EPINEPHRINE
  5. CENTRUM ACTIVE [Concomitant]
  6. CITRUCEL [Concomitant]
     Active Substance: METHYLCELLULOSE (4000 MPA.S)
  7. ALPRAZOLAM. [Concomitant]
     Active Substance: ALPRAZOLAM
  8. PROTONIX [OMEPRAZOLE] [Concomitant]
     Active Substance: OMEPRAZOLE
  9. MELATONIN [Concomitant]
     Active Substance: MELATONIN
  10. SILVER [Concomitant]
     Active Substance: SILVER
  11. NASACORT [Concomitant]
     Active Substance: TRIAMCINOLONE ACETONIDE
  12. TESTOSTERONE. [Concomitant]
     Active Substance: TESTOSTERONE
  13. AMITRIPTYLINE ZINC [Concomitant]
  14. ACETYL L?CARNITINE [ACETYLCARNITINE HYDROCHLORIDE] [Concomitant]
  15. VITAMIN B12 [Concomitant]
     Active Substance: CYANOCOBALAMIN
  16. VITAMIN D3 [Concomitant]
     Active Substance: CHOLECALCIFEROL
  17. TOPROL XL [Concomitant]
     Active Substance: METOPROLOL SUCCINATE
  18. BENAZEPRIL [Concomitant]
     Active Substance: BENAZEPRIL HYDROCHLORIDE
  19. CARAFATE [Concomitant]
     Active Substance: SUCRALFATE
  20. LIPITOR [Concomitant]
     Active Substance: ATORVASTATIN CALCIUM
  21. DALIRESP [Concomitant]
     Active Substance: ROFLUMILAST
  22. OXYGEN. [Concomitant]
     Active Substance: OXYGEN
  23. MUCINEX [Concomitant]
     Active Substance: GUAIFENESIN
  24. HCTZ [Concomitant]
     Active Substance: HYDROCHLOROTHIAZIDE
  25. DIPHENHYDRAMINE. [Concomitant]
     Active Substance: DIPHENHYDRAMINE
  26. BELSOMRA [Concomitant]
     Active Substance: SUVOREXANT
  27. ACETAMINOPHEN. [Concomitant]
     Active Substance: ACETAMINOPHEN
  28. LIDOCAINE. [Concomitant]
     Active Substance: LIDOCAINE
  29. ROBAXIN [Concomitant]
     Active Substance: METHOCARBAMOL
  30. NORVASC [Concomitant]
     Active Substance: AMLODIPINE BESYLATE
  31. SODIUM CHLORIDE. [Concomitant]
     Active Substance: SODIUM CHLORIDE
  32. ALBUTEROL [SALBUTAMOL SULFATE] [Concomitant]
     Active Substance: ALBUTEROL SULFATE
  33. ANORO ELLIPTA [Concomitant]
     Active Substance: UMECLIDINIUM BROMIDE\VILANTEROL TRIFENATATE
  34. KLOR?CON [Concomitant]
     Active Substance: POTASSIUM CHLORIDE
  35. SINGULAIR [Concomitant]
     Active Substance: MONTELUKAST SODIUM
  36. ASPIRIN (E.C.) [Concomitant]
     Active Substance: ASPIRIN

REACTIONS (1)
  - Pneumonia [Unknown]
